FAERS Safety Report 24931744 (Version 1)
Quarter: 2025Q1

REPORT INFORMATION
  Report Type: Spontaneous
  Country: KR (occurrence: KR)
  Receive Date: 20250205
  Receipt Date: 20250205
  Transmission Date: 20250409
  Serious: No
  Sender: EXELIXIS
  Company Number: KR-IPSEN Group, Research and Development-2024-11396

PATIENT
  Age: 60 Year
  Sex: Male

DRUGS (6)
  1. CABOMETYX [Suspect]
     Active Substance: CABOZANTINIB S-MALATE
     Indication: Hepatocellular carcinoma
     Dosage: 60 MG, QD
     Route: 048
     Dates: start: 20240411
  2. CABOMETYX [Suspect]
     Active Substance: CABOZANTINIB S-MALATE
     Dosage: 40 MG, QD
     Route: 048
     Dates: start: 20240509
  3. CHLORAZEPAM [Concomitant]
     Active Substance: CHLORAZEPAM
     Indication: Product used for unknown indication
  4. OLANZAPINE PAMOATE [Concomitant]
     Active Substance: OLANZAPINE PAMOATE
     Indication: Product used for unknown indication
  5. RISPERIDONE [Concomitant]
     Active Substance: RISPERIDONE
     Indication: Product used for unknown indication
  6. CREATINE [Concomitant]
     Active Substance: CREATINE
     Indication: Product used for unknown indication

REACTIONS (3)
  - Skin exfoliation [Recovering/Resolving]
  - Pain in extremity [Recovering/Resolving]
  - Pain in extremity [Recovering/Resolving]

NARRATIVE: CASE EVENT DATE: 20240426
